FAERS Safety Report 7178550-7 (Version None)
Quarter: 2010Q4

REPORT INFORMATION
  Report Type: 
  Country: None (occurrence: None)
  Receive Date: 20101221
  Receipt Date: 20101213
  Transmission Date: 20110411
  Serious: Yes (Hospitalization)
  Sender: FDA-Public Use
  Company Number: US-BIOGENIDEC-2010BI040934

PATIENT
  Age: 48 Year
  Sex: Female

DRUGS (2)
  1. TYSABRI [Suspect]
     Indication: MULTIPLE SCLEROSIS
     Route: 042
     Dates: start: 20080326, end: 20091125
  2. TYSABRI [Suspect]
     Route: 042
     Dates: start: 20100923

REACTIONS (5)
  - ARTHRALGIA [None]
  - LARGE INTESTINE PERFORATION [None]
  - MULTIPLE SCLEROSIS RELAPSE [None]
  - POOR PERIPHERAL CIRCULATION [None]
  - VISUAL IMPAIRMENT [None]
